FAERS Safety Report 6057215-9 (Version None)
Quarter: 2009Q1

REPORT INFORMATION
  Report Type: 
  Country: None (occurrence: None)
  Receive Date: 20090129
  Receipt Date: 20080331
  Transmission Date: 20090719
  Serious: No
  Sender: FDA-Public Use
  Company Number: A0721924A

PATIENT
  Age: 36 Year
  Sex: Female
  Weight: 90.9 kg

DRUGS (3)
  1. WELLBUTRIN [Suspect]
     Indication: MAJOR DEPRESSION
     Route: 048
     Dates: start: 20080204, end: 20080221
  2. DEPAKOTE [Suspect]
     Indication: BIPOLAR DISORDER
     Dosage: 500MG PER DAY
     Route: 048
     Dates: start: 20060101
  3. HYOSCYAMINE SULFATE [Concomitant]
     Dates: start: 20070101

REACTIONS (2)
  - DYSKINESIA [None]
  - TREMOR [None]
